FAERS Safety Report 10495244 (Version 1)
Quarter: 2014Q3

REPORT INFORMATION
  Report Type: Spontaneous
  Country: US (occurrence: None)
  Receive Date: 20140815
  Receipt Date: 20140815
  Transmission Date: 20150326
  Serious: Yes (Hospitalization, Other)
  Sender: FDA-Public Use
  Company Number: ADR-2014-00504

PATIENT
  Age: 47 Year
  Sex: Female

DRUGS (2)
  1. COMPOUNDED BACLOFEN INTRATHECAL - 75 MCG/ML [Suspect]
     Active Substance: BACLOFEN
     Indication: PAIN
  2. FENTANYL INTRATHECAL - 9000 MCG/ML [Suspect]
     Active Substance: FENTANYL

REACTIONS (5)
  - Hyperhidrosis [None]
  - Mental status changes [None]
  - Unevaluable event [None]
  - Anxiety [None]
  - Malaise [None]

NARRATIVE: CASE EVENT DATE: 20130501
